FAERS Safety Report 9432727 (Version 1)
Quarter: 2013Q3

REPORT INFORMATION
  Report Type: Spontaneous
  Country: GB (occurrence: GB)
  Receive Date: 20130731
  Receipt Date: 20130731
  Transmission Date: 20140515
  Serious: Yes (Other)
  Sender: FDA-Public Use
  Company Number: GB-TEVA-422271ISR

PATIENT
  Age: 23 Year
  Sex: Female

DRUGS (1)
  1. COPAXONE [Suspect]
     Dosage: 20 MILLIGRAM DAILY;
     Route: 058

REACTIONS (9)
  - Multiple sclerosis relapse [Recovered/Resolved]
  - Headache [Recovered/Resolved]
  - Sensory loss [Recovered/Resolved]
  - Speech disorder [Recovered/Resolved]
  - Multiple sclerosis relapse [Unknown]
  - Hypoaesthesia oral [Unknown]
  - Muscular weakness [Not Recovered/Not Resolved]
  - Sensory disturbance [Recovered/Resolved]
  - Gait disturbance [Recovered/Resolved]
